FAERS Safety Report 7218233-8 (Version None)
Quarter: 2011Q1

REPORT INFORMATION
  Report Type: 
  Country: None (occurrence: None)
  Receive Date: 20110110
  Receipt Date: 20110103
  Transmission Date: 20110831
  Serious: Yes (Other)
  Sender: FDA-Public Use
  Company Number: US-US-EMD SERONO, INC.-233470J09USA

PATIENT
  Sex: Female

DRUGS (1)
  1. REBIF [Suspect]
     Indication: MULTIPLE SCLEROSIS
     Route: 058
     Dates: start: 20040521

REACTIONS (6)
  - NAUSEA [None]
  - DIARRHOEA [None]
  - DEHYDRATION [None]
  - PYREXIA [None]
  - VOMITING [None]
  - CHILLS [None]
